FAERS Safety Report 8353032-5 (Version None)
Quarter: 2012Q2

REPORT INFORMATION
  Report Type: 
  Country: None (occurrence: None)
  Receive Date: 20120511
  Receipt Date: 20120501
  Transmission Date: 20120825
  Serious: Yes (Hospitalization, Other)
  Sender: FDA-Public Use
  Company Number: US-BRISTOL-MYERS SQUIBB COMPANY-16320004

PATIENT
  Age: 81 Year
  Sex: Female
  Weight: 73 kg

DRUGS (4)
  1. ASPIRIN [Concomitant]
  2. FUROSEMIDE [Concomitant]
     Indication: HYPERTENSION
  3. COUMADIN [Suspect]
     Indication: ATRIAL FIBRILLATION
     Dosage: COUMADIN 2.5MG ALSO TAKEN,MORE THAN 5 YEARS AGO,EQUIVALENT DOSE
  4. SINGULAIR [Concomitant]
     Indication: ASTHMA

REACTIONS (6)
  - HAEMATOMA [None]
  - ASTHMA [None]
  - GASTROOESOPHAGEAL REFLUX DISEASE [None]
  - HIATUS HERNIA [None]
  - FALL [None]
  - INTERNATIONAL NORMALISED RATIO DECREASED [None]
